FAERS Safety Report 17753819 (Version 2)
Quarter: 2020Q2

REPORT INFORMATION
  Report Type: Report from Study
  Country: US (occurrence: US)
  Receive Date: 20200506
  Receipt Date: 20200520
  Transmission Date: 20200714
  Serious: Yes (Death, Hospitalization, Other)
  Sender: FDA-Public Use
  Company Number: US-ACTELION-A-US2019-193586

PATIENT
  Age: 75 Year
  Sex: Male
  Weight: 75.28 kg

DRUGS (21)
  1. ANORO ELLIPTA [Concomitant]
     Active Substance: UMECLIDINIUM BROMIDE\VILANTEROL TRIFENATATE
     Dosage: 62.5 -25MCG, 1 PUFF, QD
  2. METOPROLOL TARTRATE. [Concomitant]
     Active Substance: METOPROLOL TARTRATE
     Dosage: 25 MG, BID
     Route: 048
  3. ASPIRIN. [Concomitant]
     Active Substance: ASPIRIN
     Dosage: 81 MG, QD
     Route: 048
  4. BIOTIN [Concomitant]
     Active Substance: BIOTIN
     Dosage: 2500 MCG, QD
     Route: 048
  5. METFORMIN HCL [Concomitant]
     Active Substance: METFORMIN HYDROCHLORIDE
     Dosage: 500 MG, QD
     Route: 048
  6. TAMSULOSIN HCL [Concomitant]
     Active Substance: TAMSULOSIN HYDROCHLORIDE
     Dosage: 0.4 MG, QD
     Route: 048
  7. TRACLEER [Suspect]
     Active Substance: BOSENTAN
     Indication: PULMONARY ARTERIAL HYPERTENSION
     Dosage: 62.5 MG, BID
     Route: 048
     Dates: start: 20190327
  8. ATORVASTATIN [Concomitant]
     Active Substance: ATORVASTATIN
     Dosage: 20 MG, QD
  9. ALBUTEROL HFA [Concomitant]
     Active Substance: ALBUTEROL SULFATE
  10. DOCUSATE SODIUM. [Concomitant]
     Active Substance: DOCUSATE SODIUM
  11. CHOLECALCIFEROL [Concomitant]
     Active Substance: CHOLECALCIFEROL
     Dosage: 100 MG, QD
  12. MAGNESIUM [Concomitant]
     Active Substance: MAGNESIUM
     Dosage: 200 MG, BID
     Route: 048
  13. RIVAROXABAN [Concomitant]
     Active Substance: RIVAROXABAN
     Dosage: 15 MG, Q12HRS
  14. VILANTEROL [Concomitant]
     Active Substance: VILANTEROL TRIFENATATE
     Dosage: 1 PUFF, QD
  15. FUROSEMIDE. [Concomitant]
     Active Substance: FUROSEMIDE
     Dosage: 40 MG, PRN
     Route: 048
  16. LIPITOR [Concomitant]
     Active Substance: ATORVASTATIN CALCIUM
     Dosage: 20 MG, QD
     Route: 048
  17. VENTOLIN HFA [Concomitant]
     Active Substance: ALBUTEROL SULFATE
     Dosage: 108(90 BASE) MCG, 2 PUFF, 4-6 PRN
  18. XANAX [Concomitant]
     Active Substance: ALPRAZOLAM
     Dosage: 0.5 MG, PRN
     Route: 048
  19. COENZYME Q10+ [Concomitant]
     Dosage: 100 MG
  20. JARDIANCE [Concomitant]
     Active Substance: EMPAGLIFLOZIN
     Dosage: 25 MG, QD
     Route: 048
  21. LEVOTHYROXINE SODIUM. [Concomitant]
     Active Substance: LEVOTHYROXINE SODIUM
     Dosage: 88 MCG, QD
     Route: 048

REACTIONS (53)
  - Dyspnoea [Recovering/Resolving]
  - Cough [Unknown]
  - Mean cell haemoglobin increased [Unknown]
  - Haematocrit decreased [Unknown]
  - Blood sodium decreased [Unknown]
  - Blood bilirubin increased [Unknown]
  - Oedema peripheral [Recovering/Resolving]
  - Pulmonary hypertension [Unknown]
  - Haemoptysis [Unknown]
  - Myalgia [Unknown]
  - Wheezing [Unknown]
  - Lung disorder [Unknown]
  - Atelectasis [Unknown]
  - Lymphadenopathy mediastinal [Unknown]
  - Blood bilirubin decreased [Unknown]
  - Blood bicarbonate increased [Unknown]
  - Cardiac valve disease [Unknown]
  - Unevaluable event [Unknown]
  - Dyspnoea exertional [Recovering/Resolving]
  - Nervousness [Unknown]
  - Chronic obstructive pulmonary disease [Unknown]
  - Haemoglobin decreased [Unknown]
  - Diaphragmatic paralysis [Unknown]
  - Emphysema [Unknown]
  - Pulmonary artery wall hypertrophy [Unknown]
  - Platelet count decreased [Unknown]
  - Albumin globulin ratio abnormal [Unknown]
  - Mean cell volume increased [Unknown]
  - Blood lactate dehydrogenase increased [Unknown]
  - Activated partial thromboplastin time prolonged [Unknown]
  - International normalised ratio increased [Unknown]
  - Aspartate aminotransferase increased [Unknown]
  - Cardiomegaly [Unknown]
  - Type 2 diabetes mellitus [Unknown]
  - Cardiac failure [Unknown]
  - Lung opacity [Unknown]
  - Ejection fraction decreased [Unknown]
  - Red cell distribution width increased [Unknown]
  - Paratracheal lymphadenopathy [Unknown]
  - Blood urea increased [Unknown]
  - Nasal congestion [Unknown]
  - Malaise [Unknown]
  - Death [Fatal]
  - Cardiac failure congestive [Unknown]
  - Fluid retention [Unknown]
  - Productive cough [Unknown]
  - Red blood cell count decreased [Unknown]
  - Pleural effusion [Unknown]
  - Blood glucose increased [Unknown]
  - Troponin increased [Unknown]
  - Orthopnoea [Unknown]
  - Blood chloride decreased [Unknown]
  - Fatigue [Unknown]

NARRATIVE: CASE EVENT DATE: 20190411
